FAERS Safety Report 6967574-8 (Version None)
Quarter: 2010Q3

REPORT INFORMATION
  Report Type: 
  Country: None (occurrence: None)
  Receive Date: 20100907
  Receipt Date: 20100830
  Transmission Date: 20110219
  Serious: Yes (Other)
  Sender: FDA-Public Use
  Company Number: CN-PFIZER INC-2010108596

PATIENT
  Sex: Female

DRUGS (1)
  1. ZITHROMAX [Suspect]
     Route: 042

REACTIONS (2)
  - PHLEBITIS [None]
  - VASODILATATION [None]
